FAERS Safety Report 9995547 (Version 1)
Quarter: 2014Q1

REPORT INFORMATION
  Report Type: Spontaneous
  Country: US (occurrence: None)
  Receive Date: 20140218
  Receipt Date: 20140218
  Transmission Date: 20141002
  Serious: Yes (Other)
  Sender: FDA-Public Use
  Company Number: 1000052582

PATIENT
  Age: 56 Year
  Sex: Male

DRUGS (6)
  1. VIIBRYD [Suspect]
     Indication: DEPRESSION
     Route: 048
     Dates: start: 20120515, end: 20120613
  2. VIIBRYD [Suspect]
     Indication: DEPRESSION
     Route: 048
     Dates: start: 20131218, end: 20131219
  3. VIIBRYD [Suspect]
     Indication: DEPRESSION
     Route: 048
     Dates: start: 20131220, end: 20131220
  4. CLONAZEPAM [Concomitant]
  5. LISINOPRIL [Concomitant]
  6. LISINOPRIL (ATORVASTATIN CALCIUM) [Concomitant]

REACTIONS (7)
  - Headache [None]
  - Hallucination, auditory [None]
  - Unevaluable event [None]
  - Gastrointestinal disorder [None]
  - Diarrhoea [None]
  - Arthralgia [None]
  - Drug withdrawal syndrome [None]
